FAERS Safety Report 4507250-4 (Version None)
Quarter: 2004Q4

REPORT INFORMATION
  Report Type: 
  Country: None (occurrence: None)
  Receive Date: 20041116
  Receipt Date: 20041104
  Transmission Date: 20050328
  Serious: No
  Sender: FDA-Public Use
  Company Number: CART-10049

PATIENT
  Age: 31 Year
  Sex: Female
  Weight: 90.7194 kg

DRUGS (1)
  1. CARTICEL [Suspect]
     Indication: BONE DISORDER
     Dosage: 1 NA ONCE IS
     Dates: start: 20010529, end: 20010529

REACTIONS (14)
  - ARTHRALGIA [None]
  - ARTHROFIBROSIS [None]
  - ARTHROPATHY [None]
  - ATROPHY [None]
  - DECREASED ACTIVITY [None]
  - DEPRESSION [None]
  - DISCOMFORT [None]
  - EFFUSION [None]
  - FATIGUE [None]
  - HYPERTROPHY [None]
  - JOINT DISLOCATION [None]
  - MUSCULAR WEAKNESS [None]
  - SWELLING [None]
  - WEIGHT INCREASED [None]
